FAERS Safety Report 5010570-0 (Version None)
Quarter: 2006Q2

REPORT INFORMATION
  Report Type: 
  Country: None (occurrence: None)
  Receive Date: 20060525
  Receipt Date: 20060329
  Transmission Date: 20061013
  Serious: No
  Sender: FDA-Public Use
  Company Number: US-GLAXOSMITHKLINE-A0600603A

PATIENT
  Age: 49 Year
  Sex: Female

DRUGS (2)
  1. EPZICOM [Suspect]
     Indication: HIV INFECTION
     Dosage: 1TAB PER DAY
     Route: 048
  2. NEVIRAPINE [Concomitant]
     Indication: HIV INFECTION

REACTIONS (1)
  - FATIGUE [None]
